FAERS Safety Report 6753839-1 (Version None)
Quarter: 2010Q2

REPORT INFORMATION
  Report Type: 
  Country: None (occurrence: None)
  Receive Date: 20100601
  Receipt Date: 20100525
  Transmission Date: 20101027
  Serious: Yes (Life-Threatening, Hospitalization)
  Sender: FDA-Public Use
  Company Number: WAES 1005USA03082

PATIENT
  Age: 76 Year
  Sex: Male

DRUGS (13)
  1. CAP VARINOSTAT [Suspect]
     Indication: MULTIPLE MYELOMA
     Dosage: 400 MG/DAILY/PO
     Route: 048
     Dates: start: 20100405, end: 20100412
  2. CAP VARINOSTAT [Suspect]
     Indication: MULTIPLE MYELOMA
     Dosage: 400 MG/DAILY/PO
     Route: 048
     Dates: start: 20100508, end: 20100513
  3. BORTEZOMIB [Suspect]
     Indication: MULTIPLE MYELOMA
     Dosage: 2.07 MG/DAILY/ IV; 1.6 MG/DAILY/IV
     Route: 042
     Dates: start: 20100405, end: 20100405
  4. BORTEZOMIB [Suspect]
     Indication: MULTIPLE MYELOMA
     Dosage: 2.07 MG/DAILY/ IV; 1.6 MG/DAILY/IV
     Route: 042
     Dates: start: 20100408, end: 20100408
  5. BORTEZOMIB [Suspect]
     Indication: MULTIPLE MYELOMA
     Dosage: 2.07 MG/DAILY/ IV; 1.6 MG/DAILY/IV
     Route: 042
     Dates: start: 20100408, end: 20100408
  6. ARTIST [Concomitant]
  7. HYPOCA [Concomitant]
  8. KOLANTYL [Concomitant]
  9. MEVALOTIN [Concomitant]
  10. MG OXIDE [Concomitant]
  11. NU-LDTAM [Concomitant]
  12. ULCERLMIN [Concomitant]
  13. ZYLORIC [Concomitant]

REACTIONS (17)
  - ALTERED STATE OF CONSCIOUSNESS [None]
  - ASTHENIA [None]
  - BLOOD CREATINE PHOSPHOKINASE INCREASED [None]
  - DECREASED APPETITE [None]
  - DEHYDRATION [None]
  - DISSEMINATED INTRAVASCULAR COAGULATION [None]
  - DYSARTHRIA [None]
  - DYSSTASIA [None]
  - ESCHERICHIA SEPSIS [None]
  - FATIGUE [None]
  - GASTROINTESTINAL TOXICITY [None]
  - HAEMORRHAGE [None]
  - MUSCULAR WEAKNESS [None]
  - PLEURAL EFFUSION [None]
  - PYELONEPHRITIS [None]
  - SOMNOLENCE [None]
  - THROMBOCYTOPENIA [None]
